FAERS Safety Report 23611801 (Version 2)
Quarter: 2024Q1

REPORT INFORMATION
  Report Type: Spontaneous
  Country: CA (occurrence: CA)
  Receive Date: 20240308
  Receipt Date: 20240315
  Transmission Date: 20240409
  Serious: Yes (Death, Hospitalization, Other)
  Sender: FDA-Public Use
  Company Number: CA-KARYOPHARM-2024KPT000060

PATIENT

DRUGS (5)
  1. XPOVIO [Suspect]
     Active Substance: SELINEXOR
     Indication: Plasma cell myeloma
     Dosage: XPOVIO 20MG TAB - TAKE 60 MG (3 TABS) ONCE WEEKLY FOR 5 WEEKS
     Route: 048
     Dates: start: 20231228
  2. XPOVIO [Suspect]
     Active Substance: SELINEXOR
     Dosage: 60 MG,  WEEKLY FOR 4 DOSES
     Route: 048
     Dates: start: 202401, end: 202402
  3. XPOVIO [Suspect]
     Active Substance: SELINEXOR
     Dosage: 60 MG, WEEKLY FOR 5 WEEKS
     Route: 048
     Dates: end: 202402
  4. DEXAMETHASONE [Concomitant]
     Active Substance: DEXAMETHASONE
  5. BORTEZOMIB [Concomitant]
     Active Substance: BORTEZOMIB

REACTIONS (5)
  - Death [Fatal]
  - Pneumonia [Unknown]
  - Sepsis [Unknown]
  - Pyrexia [Unknown]
  - Product dose omission issue [Unknown]

NARRATIVE: CASE EVENT DATE: 20240101
